FAERS Safety Report 12100390 (Version 1)
Quarter: 2016Q1

REPORT INFORMATION
  Report Type: Spontaneous
  Country: US (occurrence: US)
  Receive Date: 20160222
  Receipt Date: 20160222
  Transmission Date: 20160526
  Serious: No
  Sender: FDA-Public Use
  Company Number: US-JNJFOC-20160124469

PATIENT
  Age: 24 Year
  Sex: Male
  Weight: 63.5 kg

DRUGS (1)
  1. INVEGA TRINZA [Suspect]
     Active Substance: PALIPERIDONE PALMITATE
     Indication: PRODUCT USED FOR UNKNOWN INDICATION
     Route: 030

REACTIONS (4)
  - Depressed mood [Unknown]
  - Ejaculation failure [Unknown]
  - Bedridden [Unknown]
  - Apathy [Unknown]
